FAERS Safety Report 9717826 (Version 1)
Quarter: 2013Q4

REPORT INFORMATION
  Report Type: Spontaneous
  Country: US (occurrence: US)
  Receive Date: 20131125
  Receipt Date: 20131125
  Transmission Date: 20140711
  Serious: No
  Sender: FDA-Public Use
  Company Number: US-VIVUS-2012V1000249

PATIENT
  Age: 57 Year
  Sex: Female
  Weight: 99.88 kg

DRUGS (5)
  1. QSYMIA 3.75MG/23MG [Suspect]
     Indication: WEIGHT DECREASED
     Dosage: DAILY DOSE: 1 CAPSULE,
     Route: 048
     Dates: start: 20121103, end: 20121106
  2. NORVASC [Concomitant]
     Indication: BLOOD PRESSURE INCREASED
     Route: 048
     Dates: start: 2012
  3. METFORMIN [Concomitant]
     Indication: BLOOD GLUCOSE INCREASED
     Route: 048
     Dates: start: 2008
  4. LANTUS [Concomitant]
     Indication: BLOOD GLUCOSE INCREASED
     Dates: start: 2010
  5. OMEPRAZOLE [Concomitant]
     Indication: GASTROOESOPHAGEAL REFLUX DISEASE
     Route: 048
     Dates: start: 2004

REACTIONS (6)
  - Vomiting [Recovered/Resolved]
  - Pruritus generalised [Recovering/Resolving]
  - Eye swelling [Recovered/Resolved]
  - Hypersensitivity [Recovered/Resolved]
  - Urticaria [Recovering/Resolving]
  - Nausea [Recovered/Resolved]
